FAERS Safety Report 4454416-8 (Version None)
Quarter: 2004Q3

REPORT INFORMATION
  Report Type: 
  Country: None (occurrence: None)
  Receive Date: 20040917
  Receipt Date: 20040917
  Transmission Date: 20050211
  Serious: Yes (Hospitalization)
  Sender: FDA-Public Use
  Company Number: None

PATIENT
  Sex: Male
  Weight: 73.0291 kg

DRUGS (7)
  1. VANCOMYCIN [Suspect]
     Indication: BACTERIAL INFECTION
     Dosage: 1G IV QD
     Route: 042
     Dates: start: 20040829, end: 20040913
  2. FELODIPINE [Suspect]
     Indication: HYPERTENSION
     Dosage: 10 MG PO -1ST DOSE 1 DOSE ONLY
     Route: 048
     Dates: start: 20040915
  3. VORICONAZOLE [Suspect]
     Indication: ASPERGILLOSIS
  4. ACETAMINOPHEN [Concomitant]
  5. LANSOPRAZOLE [Concomitant]
  6. LISINOPRIL [Concomitant]
  7. LORAZEPAM [Concomitant]

REACTIONS (14)
  - ASPERGILLOSIS [None]
  - BLOOD PRESSURE SYSTOLIC INCREASED [None]
  - CELLULITIS [None]
  - DIZZINESS [None]
  - FLUSHING [None]
  - FUNGAL INFECTION [None]
  - GRAM STAIN POSITIVE [None]
  - NEUTROPENIA [None]
  - PANCYTOPENIA [None]
  - RASH [None]
  - SEPSIS [None]
  - SWELLING FACE [None]
  - TACHYCARDIA [None]
  - TACHYPNOEA [None]
